FAERS Safety Report 7614505-3 (Version None)
Quarter: 2011Q3

REPORT INFORMATION
  Report Type: 
  Country: None (occurrence: None)
  Receive Date: 20110708
  Receipt Date: 20110624
  Transmission Date: 20111222
  Serious: Yes (Other)
  Sender: FDA-Public Use
  Company Number: 2011AP001330

PATIENT
  Age: 54 Year
  Sex: Female

DRUGS (3)
  1. LEVOTHYROXINE SODIUM [Concomitant]
  2. SERETIDE [Concomitant]
  3. CALCITONIN SALMON [Suspect]
     Indication: OSTEOPOROSIS
     Dosage: 1 SPR; QD; NAS
     Route: 045
     Dates: start: 20101211, end: 20110622

REACTIONS (4)
  - MIGRAINE [None]
  - CONDITION AGGRAVATED [None]
  - SINUSITIS [None]
  - ASTHMA [None]
